FAERS Safety Report 5506408-5 (Version None)
Quarter: 2007Q4

REPORT INFORMATION
  Report Type: 
  Country: None (occurrence: None)
  Receive Date: 20071101
  Receipt Date: 20071101
  Transmission Date: 20080405
  Serious: Yes (Other)
  Sender: FDA-Public Use
  Company Number: None

PATIENT
  Age: 22 Year
  Sex: Female
  Weight: 63.5036 kg

DRUGS (1)
  1. KETOKONAZOLE [Suspect]
     Indication: TINEA VERSICOLOUR
     Dosage: 200 MG  ONCE  PO
     Route: 048
     Dates: start: 20070601, end: 20070602

REACTIONS (4)
  - ASTHENIA [None]
  - CONFUSIONAL STATE [None]
  - DEREALISATION [None]
  - PANIC ATTACK [None]
